FAERS Safety Report 4512459-X (Version None)
Quarter: 2005Q1

REPORT INFORMATION
  Report Type: 
  Country: None (occurrence: None)
  Receive Date: 20041008
  Receipt Date: 20040803
  Transmission Date: 20050727
  Serious: Yes (Other)
  Sender: FDA-Public Use
  Company Number: 376714

PATIENT

DRUGS (1)
  1. FUZEON [Suspect]
     Indication: DRUG USE FOR UNKNOWN INDICATION

REACTIONS (4)
  - DRY MOUTH [None]
  - KERATOCONJUNCTIVITIS SICCA [None]
  - SICCA SYNDROME [None]
  - SJOGREN'S SYNDROME [None]
